FAERS Safety Report 4714765-2 (Version None)
Quarter: 2005Q3

REPORT INFORMATION
  Report Type: 
  Country: None (occurrence: None)
  Receive Date: 20050715
  Receipt Date: 20050713
  Transmission Date: 20060218
  Serious: Yes (Death, Life-Threatening)
  Sender: FDA-Public Use
  Company Number: US-RB-1875-2005

PATIENT
  Sex: Male

DRUGS (2)
  1. SUBOXONE [Suspect]
     Indication: DRUG DEPENDENCE
     Route: 060
     Dates: start: 20050423, end: 20050603
  2. FLUOXETINE HCL [Concomitant]
     Route: 048

REACTIONS (2)
  - INJURY [None]
  - VICTIM OF HOMICIDE [None]
